FAERS Safety Report 8263541-5 (Version None)
Quarter: 2012Q2

REPORT INFORMATION
  Report Type: 
  Country: None (occurrence: None)
  Receive Date: 20120405
  Receipt Date: 20120328
  Transmission Date: 20120825
  Serious: Yes (Death, Other)
  Sender: FDA-Public Use
  Company Number: JP-CELGENEUS-087-50794-11113105

PATIENT
  Sex: Male
  Weight: 64 kg

DRUGS (9)
  1. PIPERACILLIN SODIUM [Concomitant]
     Route: 065
     Dates: start: 20110915, end: 20111006
  2. FUNGUARD [Concomitant]
     Route: 065
     Dates: start: 20110915, end: 20110919
  3. SEFIROM [Concomitant]
     Route: 065
     Dates: start: 20110907, end: 20110915
  4. KOHAKUSANIN [Concomitant]
     Route: 065
     Dates: end: 20111007
  5. VANCOMYCIN [Concomitant]
     Route: 065
     Dates: start: 20110909, end: 20110920
  6. AMBISOME [Concomitant]
     Route: 065
     Dates: start: 20110902, end: 20110915
  7. ALOXI [Concomitant]
     Route: 065
     Dates: start: 20110914, end: 20110918
  8. VIDAZA [Suspect]
     Indication: MYELODYSPLASTIC SYNDROME
     Dosage: 75 MILLIGRAM/SQ. METER
     Route: 058
     Dates: start: 20110914, end: 20110919
  9. GRANISETRON [Concomitant]
     Route: 065
     Dates: start: 20110919, end: 20110920

REACTIONS (3)
  - RENAL IMPAIRMENT [None]
  - SPLENIC RUPTURE [None]
  - PNEUMONIA [None]
